FAERS Safety Report 17420243 (Version 1)
Quarter: 2020Q1

REPORT INFORMATION
  Report Type: Report from Study
  Country: DE (occurrence: DE)
  Receive Date: 20200214
  Receipt Date: 20200214
  Transmission Date: 20200409
  Serious: Yes (Other)
  Sender: FDA-Public Use
  Company Number: DE-MYLANLABS-2020M1016008

PATIENT
  Age: 59 Year
  Sex: Female

DRUGS (2)
  1. VIRAMUNE [Concomitant]
     Active Substance: NEVIRAPINE
     Dosage: UNK
  2. EMTRICITABINE/TENOFOVIR DISOPROXIL FUMARATE [Suspect]
     Active Substance: EMTRICITABINE\TENOFOVIR DISOPROXIL FUMARATE
     Indication: HIV INFECTION
     Dosage: UNK
     Route: 048

REACTIONS (6)
  - Nasopharyngitis [Unknown]
  - Drug ineffective [Unknown]
  - Infection [Unknown]
  - Herpes virus infection [Unknown]
  - Viral load increased [Unknown]
  - Stress [Unknown]
